FAERS Safety Report 4686223-5 (Version None)
Quarter: 2005Q2

REPORT INFORMATION
  Report Type: 
  Country: None (occurrence: None)
  Receive Date: 20050609
  Receipt Date: 20050526
  Transmission Date: 20051028
  Serious: Yes (Disabling, Other)
  Sender: FDA-Public Use
  Company Number: US-GLAXOSMITHKLINE-A0560284A

PATIENT
  Age: 55 Year
  Sex: Female
  Weight: 100 kg

DRUGS (7)
  1. AVANDIA [Suspect]
     Dosage: 2MG PER DAY
     Route: 048
     Dates: start: 20050101, end: 20050512
  2. ACTOS [Suspect]
     Dosage: 15MG PER DAY
     Route: 048
     Dates: start: 20050523, end: 20050525
  3. GLIPIZIDE [Concomitant]
     Dosage: 10MG PER DAY
     Route: 048
     Dates: start: 19970101
  4. ZOCOR [Concomitant]
     Dosage: 20MG AT NIGHT
     Route: 048
     Dates: start: 20050101
  5. CELEBREX [Concomitant]
     Dosage: 200MG PER DAY
     Route: 048
     Dates: start: 20020101
  6. ASPIRIN [Concomitant]
     Route: 048
     Dates: start: 20020101
  7. PREMPRO (PREMARIN;CYCRIN 14/14) [Concomitant]
     Route: 048
     Dates: start: 20010101

REACTIONS (3)
  - CARDIOMEGALY [None]
  - DYSPNOEA [None]
  - WHEEZING [None]
